FAERS Safety Report 12169495 (Version 1)
Quarter: 2016Q1

REPORT INFORMATION
  Report Type: Spontaneous
  Country: US (occurrence: US)
  Receive Date: 20160310
  Receipt Date: 20160310
  Transmission Date: 20160526
  Serious: No
  Sender: FDA-Public Use
  Company Number: US-MEDA-2016030007

PATIENT
  Age: 81 Year
  Sex: Male
  Weight: 77 kg

DRUGS (9)
  1. ASTELIN [Suspect]
     Active Substance: AZELASTINE HYDROCHLORIDE
     Dates: start: 20160228, end: 20160228
  2. BABY ASPIRIN [Concomitant]
     Active Substance: ASPIRIN
  3. METOPROLOL TARTRATE. [Concomitant]
     Active Substance: METOPROLOL TARTRATE
  4. LEVOTHYROXINE. [Concomitant]
     Active Substance: LEVOTHYROXINE
  5. EPITOL [Concomitant]
     Active Substance: CARBAMAZEPINE
  6. MAGNESIUM [Concomitant]
     Active Substance: MAGNESIUM
  7. DUTASTERIDE. [Concomitant]
     Active Substance: DUTASTERIDE
  8. JANUMET XR [Concomitant]
     Active Substance: METFORMIN HYDROCHLORIDE\SITAGLIPTIN PHOSPHATE
  9. ASTELIN [Suspect]
     Active Substance: AZELASTINE HYDROCHLORIDE
     Dosage: ONE SPRAY IN RIGHT NOSTRIL
     Dates: start: 20160229, end: 20160301

REACTIONS (2)
  - Therapeutic response unexpected [Unknown]
  - Dysgeusia [Recovering/Resolving]

NARRATIVE: CASE EVENT DATE: 20160228
